FAERS Safety Report 18459502 (Version 2)
Quarter: 2020Q4

REPORT INFORMATION
  Report Type: Spontaneous
  Country: BR (occurrence: BR)
  Receive Date: 20201103
  Receipt Date: 20201111
  Transmission Date: 20210114
  Serious: Yes (Other)
  Sender: FDA-Public Use
  Company Number: NVSC2020BR294547

PATIENT
  Sex: Male

DRUGS (1)
  1. TRAVATAN Z [Suspect]
     Active Substance: TRAVOPROST
     Indication: GLAUCOMA
     Dosage: 1 DRP (EACH EYE EVERY DAY) (STARTED AROUD 8 YEARS AGO)
     Route: 047

REACTIONS (7)
  - Drug ineffective [Unknown]
  - Malaise [Unknown]
  - Glaucoma [Unknown]
  - Dry eye [Unknown]
  - Photopsia [Unknown]
  - Visual impairment [Not Recovered/Not Resolved]
  - Eye irritation [Unknown]
